FAERS Safety Report 19865460 (Version 4)
Quarter: 2022Q2

REPORT INFORMATION
  Report Type: Report from Study
  Country: US (occurrence: US)
  Receive Date: 20210921
  Receipt Date: 20220517
  Transmission Date: 20220721
  Serious: Yes (Hospitalization)
  Sender: FDA-Public Use
  Company Number: US-TAKEDA-2021TUS029542

PATIENT
  Sex: Female
  Weight: 97 kg

DRUGS (30)
  1. HUMAN IMMUNOGLOBULIN G [Suspect]
     Active Substance: HUMAN IMMUNOGLOBULIN G
     Indication: Myasthenia gravis
     Dosage: 95 GRAM, Q4WEEKS
     Route: 042
     Dates: start: 20210426
  2. HUMAN IMMUNOGLOBULIN G [Suspect]
     Active Substance: HUMAN IMMUNOGLOBULIN G
     Indication: Chronic inflammatory demyelinating polyradiculoneuropathy
     Dosage: 98 GRAM, Q4WEEKS
     Route: 042
     Dates: start: 20210426
  3. FLONASE [Concomitant]
     Active Substance: FLUTICASONE PROPIONATE
     Route: 065
  4. MESTINON [Concomitant]
     Active Substance: PYRIDOSTIGMINE BROMIDE
     Route: 065
  5. PERCOCET [Concomitant]
     Active Substance: ACETAMINOPHEN\OXYCODONE HYDROCHLORIDE
     Route: 065
  6. ACETAMINOPHEN [Concomitant]
     Active Substance: ACETAMINOPHEN
     Route: 065
  7. DIPHENHYDRAMINE [Concomitant]
     Active Substance: DIPHENHYDRAMINE
     Route: 065
  8. HEPARIN [Concomitant]
     Active Substance: HEPARIN SODIUM
     Route: 065
  9. LIDOCAINE [Concomitant]
     Active Substance: LIDOCAINE
     Route: 065
  10. SODIUM CHLORIDE [Concomitant]
     Active Substance: SODIUM CHLORIDE
     Route: 065
  11. SODIUM CHLORIDE [Concomitant]
     Active Substance: SODIUM CHLORIDE
     Route: 065
  12. EPINEPHRINE [Concomitant]
     Active Substance: EPINEPHRINE
     Route: 065
  13. CYMBALTA [Concomitant]
     Active Substance: DULOXETINE HYDROCHLORIDE
     Route: 065
  14. CELEBREX [Concomitant]
     Active Substance: CELECOXIB
     Route: 065
  15. KLOR-CON [Concomitant]
     Active Substance: POTASSIUM CHLORIDE
     Route: 065
  16. TIZANIDINE HYDROCHLORIDE [Concomitant]
     Active Substance: TIZANIDINE HYDROCHLORIDE
     Route: 065
  17. CALCIUM [Concomitant]
     Active Substance: CALCIUM
     Route: 065
  18. LISINOPRIL [Concomitant]
     Active Substance: LISINOPRIL
     Route: 065
  19. VITAMINS NOS [Concomitant]
     Active Substance: VITAMINS
     Route: 065
  20. STOOL SOFTENER (DOCUSATE) [Concomitant]
     Active Substance: DOCUSATE
     Route: 065
  21. FLUTICASONE PROPIONATE [Concomitant]
     Active Substance: FLUTICASONE PROPIONATE
  22. ONDANSETRON [Concomitant]
     Active Substance: ONDANSETRON
  23. PREDNISOLONE [Concomitant]
     Active Substance: PREDNISOLONE
  24. DOK [Concomitant]
     Active Substance: DOCUSATE SODIUM
  25. METHYLPREDNISOLONE [Concomitant]
     Active Substance: METHYLPREDNISOLONE
     Route: 065
  26. PROVERA [Concomitant]
     Active Substance: MEDROXYPROGESTERONE ACETATE
  27. ONDANSETRON [Concomitant]
     Active Substance: ONDANSETRON
  28. SOLU-MEDROL [Concomitant]
     Active Substance: METHYLPREDNISOLONE SODIUM SUCCINATE
  29. ZOFRAN [Concomitant]
     Active Substance: ONDANSETRON HYDROCHLORIDE
  30. Lmx [Concomitant]

REACTIONS (14)
  - Medical device change [Unknown]
  - Blood pressure increased [Unknown]
  - Infusion site haemorrhage [Unknown]
  - Adverse drug reaction [Unknown]
  - Flushing [Unknown]
  - Cold sweat [Unknown]
  - Depressed mood [Unknown]
  - Rash [Unknown]
  - Nausea [Unknown]
  - Headache [Unknown]
  - Fall [Unknown]
  - Muscle strain [Unknown]
  - Sinusitis [Unknown]
  - Off label use [Unknown]
